FAERS Safety Report 21389771 (Version 1)
Quarter: 2022Q3

REPORT INFORMATION
  Report Type: Spontaneous
  Country: CA (occurrence: CA)
  Receive Date: 20220929
  Receipt Date: 20220929
  Transmission Date: 20221027
  Serious: Yes (Other)
  Sender: FDA-Public Use
  Company Number: CA-CELLTRION INC.-2022CA010931

PATIENT

DRUGS (4)
  1. INFLECTRA [Suspect]
     Active Substance: INFLIXIMAB-DYYB
     Indication: Colitis ulcerative
     Dosage: 300 MG WEEK 0, 2, 6 - MAINTENANCE FREQ NOT REPORTED - NOT STARTED YET
     Route: 042
  2. INFLECTRA [Suspect]
     Active Substance: INFLIXIMAB-DYYB
     Indication: Ankylosing spondylitis
     Dosage: 300MG,WEEK 0, 2, 6 - MAINTENANCE FREQ NOT REPORTED
     Route: 042
     Dates: start: 20220805
  3. INFLECTRA [Suspect]
     Active Substance: INFLIXIMAB-DYYB
     Dosage: 300MG,WEEK 0, 2, 6 - MAINTENANCE FREQ NOT REPORTED
     Route: 042
     Dates: start: 20220819
  4. INFLECTRA [Suspect]
     Active Substance: INFLIXIMAB-DYYB
     Dosage: 300 MG ,WEEK 0, 2, 6 - MAINTENANCE FREQ NOT REPORTED
     Route: 042
     Dates: start: 20220916

REACTIONS (3)
  - Weight fluctuation [Not Recovered/Not Resolved]
  - Off label use [Unknown]
  - Off label use [Unknown]

NARRATIVE: CASE EVENT DATE: 20220819
